FAERS Safety Report 17680788 (Version 2)
Quarter: 2020Q2

REPORT INFORMATION
  Report Type: Report from Study
  Country: US (occurrence: US)
  Receive Date: 20200417
  Receipt Date: 20200529
  Transmission Date: 20200714
  Serious: Yes (Other)
  Sender: FDA-Public Use
  Company Number: US-JNJFOC-20200411933

PATIENT
  Age: 41 Year
  Sex: Male

DRUGS (14)
  1. EXCEDRIN [Concomitant]
     Active Substance: ACETAMINOPHEN\ASPIRIN\CAFFEINE
     Indication: PROPHYLAXIS
  2. RISPERIDONE. [Concomitant]
     Active Substance: RISPERIDONE
     Indication: NEGATIVE THOUGHTS
     Dates: start: 20200406, end: 20200406
  3. VIIBRYD [Concomitant]
     Active Substance: VILAZODONE HYDROCHLORIDE
  4. VYVANSE [Concomitant]
     Active Substance: LISDEXAMFETAMINE DIMESYLATE
     Dosage: 60 MG/1
  5. RISPERIDONE. [Concomitant]
     Active Substance: RISPERIDONE
     Dosage: 2 TABLETS
  6. LOSARTAN. [Concomitant]
     Active Substance: LOSARTAN
  7. PROPRANOLOL                        /00030002/ [Concomitant]
     Active Substance: PROPRANOLOL HYDROCHLORIDE
  8. BENADRYL [Concomitant]
     Active Substance: DIPHENHYDRAMINE HYDROCHLORIDE
  9. LAMOTRIGINE. [Concomitant]
     Active Substance: LAMOTRIGINE
     Dosage: 200 MG/1
  10. TRAZODONE [Concomitant]
     Active Substance: TRAZODONE HYDROCHLORIDE
  11. WARFARIN [Concomitant]
     Active Substance: WARFARIN
  12. SPRAVATO [Suspect]
     Active Substance: ESKETAMINE
     Indication: DEPRESSION
  13. SPRAVATO [Suspect]
     Active Substance: ESKETAMINE
     Dates: start: 20200406, end: 20200406
  14. SAPHRIS [Concomitant]
     Active Substance: ASENAPINE MALEATE
     Dosage: 10 MG UP TO 22.5 MG

REACTIONS (9)
  - Feeling abnormal [Unknown]
  - Negative thoughts [Recovered/Resolved]
  - Sedation [Recovered/Resolved]
  - Hallucination, visual [Recovered/Resolved]
  - Dizziness [Unknown]
  - Vision blurred [Unknown]
  - Self-injurious ideation [Recovered/Resolved]
  - Crying [Recovered/Resolved]
  - Dissociation [Recovered/Resolved]

NARRATIVE: CASE EVENT DATE: 20200406
